FAERS Safety Report 5339579-4 (Version None)
Quarter: 2007Q2

REPORT INFORMATION
  Report Type: 
  Country: None (occurrence: None)
  Receive Date: 20070525
  Receipt Date: 20070516
  Transmission Date: 20071010
  Serious: Yes (Life-Threatening, Hospitalization)
  Sender: FDA-Public Use
  Company Number: 2007-02425

PATIENT
  Age: 74 Year
  Sex: Male

DRUGS (1)
  1. QUINIDINE HCL [Suspect]
     Indication: HEART RATE IRREGULAR
     Dosage: 648 MG, ALL AT ONCE, ORAL
     Route: 048
     Dates: start: 20070410, end: 20070410

REACTIONS (5)
  - BLOOD PRESSURE SYSTOLIC DECREASED [None]
  - CARDIAC ARREST [None]
  - EYE ROLLING [None]
  - HYPOTENSION [None]
  - INCOHERENT [None]
